FAERS Safety Report 9024569 (Version 4)
Quarter: 2013Q1

REPORT INFORMATION
  Report Type: Spontaneous
  Country: US (occurrence: None)
  Receive Date: 20130104
  Receipt Date: 20130325
  Transmission Date: 20140127
  Serious: Yes (Other)
  Sender: FDA-Public Use
  Company Number: 2012P1066946

PATIENT
  Age: 84 Year
  Sex: Female
  Weight: 52.16 kg

DRUGS (3)
  1. COLLAGENASE SANTYL [Suspect]
     Indication: WOUND
     Dates: start: 201111
  2. DOXYCYCLINE [Suspect]
     Indication: WOUND
     Dates: start: 201211
  3. MEDIHONEY [Suspect]
     Indication: WOUND
     Route: 061
     Dates: start: 201211

REACTIONS (9)
  - Pruritus [None]
  - Rash generalised [None]
  - Drug ineffective [None]
  - Peripheral arterial occlusive disease [None]
  - Impaired healing [None]
  - Application site pain [None]
  - Application site pain [None]
  - Hypersensitivity [None]
  - Wound [None]
